FAERS Safety Report 19911413 (Version 1)
Quarter: 2021Q4

REPORT INFORMATION
  Report Type: Spontaneous
  Country: IT (occurrence: IT)
  Receive Date: 20211004
  Receipt Date: 20211004
  Transmission Date: 20220303
  Serious: Yes (Other)
  Sender: FDA-Public Use
  Company Number: IT-TEVA-2021-IT-1960965

PATIENT
  Age: 37 Year
  Sex: Female

DRUGS (19)
  1. DOCETAXEL [Suspect]
     Active Substance: DOCETAXEL
     Indication: Triple positive breast cancer
     Dosage: FOR FOUR CYCLES
     Route: 065
     Dates: start: 201201, end: 201204
  2. DOCETAXEL [Suspect]
     Active Substance: DOCETAXEL
     Indication: Triple positive breast cancer
     Dosage: 25% REDUCED DOSE
     Route: 065
     Dates: start: 2012
  3. DOCETAXEL [Suspect]
     Active Substance: DOCETAXEL
     Indication: Triple positive breast cancer
     Dosage: AT STANDARD DOSE
     Route: 065
     Dates: start: 201601
  4. PACLITAXEL [Suspect]
     Active Substance: PACLITAXEL
     Indication: Triple positive breast cancer
     Route: 065
     Dates: start: 2019
  5. DOXORUBICIN [Suspect]
     Active Substance: DOXORUBICIN
     Indication: Triple positive breast cancer
     Dosage: FOR FOUR CYCLES
     Route: 065
     Dates: start: 201201, end: 201204
  6. GEMCITABINE [Suspect]
     Active Substance: GEMCITABINE
     Indication: Triple positive breast cancer
     Dosage: ON DAY 1 AND 8
     Route: 065
     Dates: start: 202004
  7. GEMCITABINE [Suspect]
     Active Substance: GEMCITABINE
     Indication: Triple positive breast cancer
     Dosage: 25% REDUCED DOSE
     Route: 065
     Dates: start: 202012
  8. TRASTUZUMAB [Suspect]
     Active Substance: TRASTUZUMAB
     Indication: Triple positive breast cancer
     Dosage: LOADING DOSE
     Route: 058
     Dates: start: 201201, end: 201204
  9. TRASTUZUMAB [Suspect]
     Active Substance: TRASTUZUMAB
     Indication: Triple positive breast cancer
     Route: 058
     Dates: start: 201204
  10. TRASTUZUMAB [Suspect]
     Active Substance: TRASTUZUMAB
     Indication: Triple positive breast cancer
     Route: 058
     Dates: start: 201210, end: 201304
  11. TRASTUZUMAB [Suspect]
     Active Substance: TRASTUZUMAB
     Indication: Triple positive breast cancer
     Dosage: AT STANDARD DOSE
     Route: 058
     Dates: start: 201601
  12. CYCLOPHOSPHAMIDE [Suspect]
     Active Substance: CYCLOPHOSPHAMIDE
     Indication: Triple positive breast cancer
     Dosage: FOR FOUR CYCLES
     Route: 065
     Dates: start: 201201, end: 201204
  13. PERTUZUMAB [Suspect]
     Active Substance: PERTUZUMAB
     Indication: Triple positive breast cancer
     Route: 065
     Dates: start: 201601
  14. ADO-TRASTUZUMAB EMTANSINE [Suspect]
     Active Substance: ADO-TRASTUZUMAB EMTANSINE
     Indication: Triple positive breast cancer
     Route: 065
     Dates: start: 201608
  15. DENOSUMAB [Suspect]
     Active Substance: DENOSUMAB
     Indication: Triple positive breast cancer
     Route: 065
     Dates: start: 201608
  16. NAVELBINE [Suspect]
     Active Substance: VINORELBINE TARTRATE
     Indication: Triple positive breast cancer
     Dosage: 25 MG/MQ DAY 1-8
     Route: 065
     Dates: start: 201608
  17. CAPECITABINE [Suspect]
     Active Substance: CAPECITABINE
     Indication: Triple positive breast cancer
     Dosage: 1000 MG/MQ ON DAY 1-14
     Route: 065
     Dates: start: 201810
  18. LAPATINIB [Suspect]
     Active Substance: LAPATINIB
     Indication: Triple positive breast cancer
     Route: 065
     Dates: start: 201810
  19. TAMOXIFEN [Concomitant]
     Active Substance: TAMOXIFEN
     Indication: Triple positive breast cancer
     Route: 065

REACTIONS (6)
  - Thrombocytopenia [Unknown]
  - Neutropenia [Unknown]
  - Hepatotoxicity [Unknown]
  - Hypertransaminasaemia [Unknown]
  - Mucosal inflammation [Unknown]
  - Anaemia [Unknown]

NARRATIVE: CASE EVENT DATE: 20120101
